FAERS Safety Report 23081055 (Version 2)
Quarter: 2023Q4

REPORT INFORMATION
  Report Type: Report from Study
  Country: CL (occurrence: CL)
  Receive Date: 20231018
  Receipt Date: 20231025
  Transmission Date: 20240110
  Serious: Yes (Hospitalization)
  Sender: FDA-Public Use
  Company Number: CL-Eisai Medical Research-EC-2023-139737

PATIENT
  Age: 59 Year
  Sex: Male
  Weight: 70.0 kg

DRUGS (32)
  1. LENVATINIB [Suspect]
     Active Substance: LENVATINIB
     Indication: Adenocarcinoma pancreas
     Dosage: STARTING DOSE AT 20 MG, FLUCTUATED DOSAGE
     Route: 048
     Dates: start: 20220708, end: 20230502
  2. LENVATINIB [Suspect]
     Active Substance: LENVATINIB
     Dosage: DOSE REDUCED
     Route: 048
     Dates: start: 20230511
  3. PEMBROLIZUMAB [Suspect]
     Active Substance: PEMBROLIZUMAB
     Indication: Adenocarcinoma pancreas
     Route: 041
     Dates: start: 20230323, end: 20230323
  4. PEMBROLIZUMAB [Suspect]
     Active Substance: PEMBROLIZUMAB
     Route: 041
     Dates: start: 20230511
  5. BELZUTIFAN [Suspect]
     Active Substance: BELZUTIFAN
     Indication: Adenocarcinoma pancreas
     Route: 048
     Dates: start: 20220708, end: 20230502
  6. BELZUTIFAN [Suspect]
     Active Substance: BELZUTIFAN
     Route: 048
     Dates: start: 20230511
  7. INSULIN NOS [Concomitant]
     Active Substance: INSULIN NOS
     Dates: start: 202106, end: 20230216
  8. INSULIN NOS [Concomitant]
     Active Substance: INSULIN NOS
     Dates: start: 202106
  9. TRAMADOL HYDROCHLORIDE [Concomitant]
     Active Substance: TRAMADOL HYDROCHLORIDE
     Dates: start: 202108, end: 20230523
  10. ESOMEPRAZOLE [Concomitant]
     Active Substance: ESOMEPRAZOLE
     Dates: start: 202108
  11. METOCLOPRAMIDE [Concomitant]
     Active Substance: METOCLOPRAMIDE
     Dates: start: 202108
  12. DULOXETINE HYDROCHLORIDE [Concomitant]
     Active Substance: DULOXETINE HYDROCHLORIDE
     Dates: start: 202108
  13. ATORVASTATIN [Concomitant]
     Active Substance: ATORVASTATIN
     Dates: start: 20221102
  14. MAGNATIL C [Concomitant]
     Dates: start: 20221205, end: 20230920
  15. LEVOTHYROXINE SODIUM [Concomitant]
     Active Substance: LEVOTHYROXINE SODIUM
     Dates: start: 20221205
  16. SPIRONOLACTONE [Concomitant]
     Active Substance: SPIRONOLACTONE
     Dates: start: 20230125
  17. RACECADOTRIL [Concomitant]
     Active Substance: RACECADOTRIL
     Dates: start: 20230215, end: 20230218
  18. PREDNISONE [Concomitant]
     Active Substance: PREDNISONE
     Dates: start: 20230215, end: 20230504
  19. DIGENIL [Concomitant]
     Dates: start: 20230215
  20. SULFAMETHOXAZOLE\TRIMETHOPRIM [Concomitant]
     Active Substance: SULFAMETHOXAZOLE\TRIMETHOPRIM
     Dates: start: 20230215
  21. INSULIN PORK\INSULIN PURIFIED PORK [Concomitant]
     Active Substance: INSULIN PORK\INSULIN PURIFIED PORK
     Dates: start: 20230217, end: 20230523
  22. NEO PANKREOFLAT [Concomitant]
     Dates: start: 20230217
  23. JARDIANCE [Concomitant]
     Active Substance: EMPAGLIFLOZIN
     Dates: start: 20230217
  24. ONDANSETRON [Concomitant]
     Active Substance: ONDANSETRON
     Dates: start: 20230322, end: 20230910
  25. AKYNZEO (NETUPITANT\PALONOSETRON) [Concomitant]
     Active Substance: NETUPITANT\PALONOSETRON
     Dates: start: 20230323, end: 20230323
  26. ACETAMINOPHEN [Concomitant]
     Active Substance: ACETAMINOPHEN
     Dates: start: 20230323, end: 20230323
  27. CAPTOPRIL [Concomitant]
     Active Substance: CAPTOPRIL
     Dates: start: 20230323, end: 20230323
  28. LOSARTAN [Concomitant]
     Active Substance: LOSARTAN
     Dates: start: 200201, end: 20230509
  29. AMLODIPINE [Concomitant]
     Active Substance: AMLODIPINE BESYLATE
     Dates: start: 200201, end: 20230125
  30. METFORMIN [Concomitant]
     Active Substance: METFORMIN HYDROCHLORIDE
     Dates: start: 20210701
  31. PREGABALIN [Concomitant]
     Active Substance: PREGABALIN
     Dates: start: 202108, end: 20230125
  32. MAGNATIL C (ASCORBIC ACID, MAGNESIUM) Tablet ; 05-DEC-2022 / 20-SEP-20 [Concomitant]

REACTIONS (1)
  - Hypokalaemia [Recovered/Resolved]

NARRATIVE: CASE EVENT DATE: 20230503
